FAERS Safety Report 5553707-7 (Version None)
Quarter: 2007Q4

REPORT INFORMATION
  Report Type: 
  Country: None (occurrence: None)
  Receive Date: 20071213
  Receipt Date: 20071212
  Transmission Date: 20080405
  Serious: Yes (Hospitalization, Other)
  Sender: FDA-Public Use
  Company Number: FR-BRISTOL-MYERS SQUIBB COMPANY-14012744

PATIENT
  Age: 42 Year
  Sex: Male

DRUGS (2)
  1. BLINDED: CISPLATIN [Suspect]
     Indication: SQUAMOUS CELL CARCINOMA
     Dosage: 30-OCT-2007- ONGOING.
     Route: 042
     Dates: start: 20071030
  2. BLINDED: RADIOTHERAPY [Suspect]
     Indication: SQUAMOUS CELL CARCINOMA
     Dosage: 1 DOSAGE FORM = GRAY, DOSE NOT REPORTED.30-OCT-2007- ONGOING.
     Route: 061
     Dates: start: 20071030

REACTIONS (5)
  - ANOREXIA [None]
  - DYSGEUSIA [None]
  - DYSPHAGIA [None]
  - MUCOSAL INFLAMMATION [None]
  - WEIGHT DECREASED [None]
